FAERS Safety Report 7472937-0 (Version None)
Quarter: 2011Q2

REPORT INFORMATION
  Report Type: 
  Country: None (occurrence: None)
  Receive Date: 20110511
  Receipt Date: 20110505
  Transmission Date: 20111010
  Serious: Yes (Hospitalization)
  Sender: FDA-Public Use
  Company Number: US-PFIZER INC-2011030686

PATIENT
  Sex: Female
  Weight: 63.492 kg

DRUGS (6)
  1. ADVIL LIQUI-GELS [Suspect]
     Indication: PAIN
     Dosage: UNK
     Route: 048
     Dates: start: 20110201, end: 20110201
  2. LEXAPRO [Concomitant]
     Dosage: 20 MG, DAILY
  3. LISINOPRIL [Concomitant]
     Dosage: 20 MG, DAILY
  4. NEXIUM [Concomitant]
     Dosage: 40 MG, UNK
  5. ADVIL LIQUI-GELS [Suspect]
     Indication: ARTHRALGIA
     Dosage: UNK
     Dates: end: 20110101
  6. PREMARIN [Concomitant]
     Dosage: 0.625 MG, DAILY

REACTIONS (4)
  - PULMONARY THROMBOSIS [None]
  - THROMBOSIS [None]
  - DRUG INEFFECTIVE [None]
  - DRUG EFFECT DECREASED [None]
